FAERS Safety Report 9323838 (Version 4)
Quarter: 2013Q3

REPORT INFORMATION
  Report Type: Report from Study
  Country: DE (occurrence: DE)
  Receive Date: 20130603
  Receipt Date: 20130708
  Transmission Date: 20140515
  Serious: Yes (Death, Hospitalization, Other)
  Sender: FDA-Public Use
  Company Number: DE-ASTELLAS-2013US005717

PATIENT
  Age: 64 Year
  Sex: Female

DRUGS (9)
  1. ERLOTINIB TABLET [Suspect]
     Indication: NON-SMALL CELL LUNG CANCER METASTATIC
     Dosage: 150 MG, UID/QD
     Route: 048
     Dates: start: 20120906
  2. TAVOR                              /00273201/ [Concomitant]
     Indication: INSOMNIA
     Dosage: 1 DF, UID/QD
     Route: 048
     Dates: start: 20120920
  3. XGEVA [Concomitant]
     Indication: METASTASES TO BONE
     Dosage: 120 MG, 1 IN 4 WK
     Route: 042
  4. NOVALGIN                           /00169801/ [Concomitant]
     Indication: PAIN
     Dosage: 40 GTT AS REQUIRED
     Route: 048
     Dates: start: 20120411
  5. CLEXANE [Concomitant]
     Indication: PROPHYLAXIS
     Dosage: 40 IU, BID
     Route: 042
     Dates: start: 20120411
  6. CLEXANE [Concomitant]
     Dosage: 40 IU, BID
     Route: 042
     Dates: start: 20120422
  7. DIPYRONE [Concomitant]
     Indication: PRODUCT USED FOR UNKNOWN INDICATION
     Dosage: UNK
     Route: 065
  8. CALCIUM [Concomitant]
     Indication: PRODUCT USED FOR UNKNOWN INDICATION
     Dosage: UNK
     Route: 065
  9. NALOXONE HYDROCHLORIDE [Concomitant]
     Indication: PRODUCT USED FOR UNKNOWN INDICATION
     Dosage: UNK
     Route: 065

REACTIONS (16)
  - Inflammation [Recovered/Resolved]
  - Aortic thrombosis [Unknown]
  - Pulmonary embolism [Not Recovered/Not Resolved]
  - Pleural effusion [Unknown]
  - Multi-organ failure [Fatal]
  - Abdominal pain [Fatal]
  - Peripheral ischaemia [Fatal]
  - Haemorrhage [Fatal]
  - Intestinal ischaemia [Fatal]
  - Peripheral embolism [Unknown]
  - General physical health deterioration [Not Recovered/Not Resolved]
  - C-reactive protein increased [Not Recovered/Not Resolved]
  - Malignant neoplasm progression [Fatal]
  - Pyrexia [Recovered/Resolved]
  - Fatigue [Unknown]
  - Mechanical ileus [Unknown]
